FAERS Safety Report 14378430 (Version 3)
Quarter: 2018Q1

REPORT INFORMATION
  Report Type: Report from Study
  Country: ZA (occurrence: ZA)
  Receive Date: 20180111
  Receipt Date: 20180125
  Transmission Date: 20180509
  Serious: Yes (Death, Life-Threatening, Hospitalization, Other)
  Sender: FDA-Public Use
  Company Number: ZA-AMGEN-ZAFSL2018003842

PATIENT
  Age: 39 Year
  Sex: Male

DRUGS (2)
  1. ARANESP [Suspect]
     Active Substance: DARBEPOETIN ALFA
     Dosage: UNK
     Route: 058
  2. ARANESP [Suspect]
     Active Substance: DARBEPOETIN ALFA
     Indication: CHRONIC KIDNEY DISEASE
     Dosage: 60 MUG, Q2WK
     Route: 058
     Dates: start: 201306

REACTIONS (14)
  - Mitral valve incompetence [Unknown]
  - Abdominal adhesions [Unknown]
  - Hypertension [Unknown]
  - Hypotension [Unknown]
  - Respiratory arrest [Unknown]
  - Chronic kidney disease-mineral and bone disorder [Unknown]
  - Brain injury [Unknown]
  - Sepsis [Recovered/Resolved]
  - Myocardial infarction [Fatal]
  - Superior vena cava stenosis [Unknown]
  - Cardiac tamponade [Not Recovered/Not Resolved]
  - Pericarditis tuberculous [Unknown]
  - Intra-abdominal fluid collection [Unknown]
  - Hyperparathyroidism tertiary [Unknown]

NARRATIVE: CASE EVENT DATE: 2017
